FAERS Safety Report 8553674-8 (Version None)
Quarter: 2012Q3

REPORT INFORMATION
  Report Type: 
  Country: None (occurrence: None)
  Receive Date: 20120731
  Receipt Date: 20120720
  Transmission Date: 20120928
  Serious: Yes (Disabling, Other)
  Sender: FDA-Public Use
  Company Number: US-009507513-1107USA03603

PATIENT

DRUGS (6)
  1. FOSAMAX [Suspect]
     Indication: OSTEOPOROSIS
     Dosage: 10 MG, QD
     Route: 048
     Dates: start: 19950901
  2. FOSAMAX [Suspect]
     Dosage: 10 MG, UNK
     Route: 048
     Dates: start: 20080406
  3. FOSAMAX [Suspect]
     Dosage: 70 MG, QW
  4. PREMARIN [Concomitant]
     Indication: ARTIFICIAL MENOPAUSE
     Dosage: 1.25 MG, UNK
  5. PROVERA [Concomitant]
     Indication: ARTIFICIAL MENOPAUSE
  6. FOSAMAX [Suspect]
     Indication: OSTEOPENIA
     Route: 048
     Dates: start: 19951101, end: 20090701

REACTIONS (17)
  - JAW DISORDER [None]
  - TOOTH DISORDER [None]
  - EYE DISORDER [None]
  - BLOOD CHOLESTEROL INCREASED [None]
  - ABSCESS [None]
  - RETINAL TEAR [None]
  - RETINAL DETACHMENT [None]
  - RHINITIS ALLERGIC [None]
  - PERIODONTAL DISEASE [None]
  - GINGIVAL INJURY [None]
  - FOOT FRACTURE [None]
  - OSTEONECROSIS OF JAW [None]
  - GINGIVAL BLEEDING [None]
  - WEIGHT INCREASED [None]
  - FRACTURE [None]
  - MYOPIA [None]
  - PRESBYOPIA [None]
